FAERS Safety Report 18995403 (Version 2)
Quarter: 2021Q2

REPORT INFORMATION
  Report Type: Spontaneous
  Country: US (occurrence: US)
  Receive Date: 20210311
  Receipt Date: 20210624
  Transmission Date: 20210717
  Serious: No
  Sender: FDA-Public Use
  Company Number: US-DECIPHERA PHARMACEUTICALS LLC-2020-US-000751

PATIENT
  Age: 66 Year
  Sex: Male

DRUGS (3)
  1. QINLOCK [Suspect]
     Active Substance: RIPRETINIB
     Dosage: 150 MILLIGRAM, QD
     Route: 048
  2. COVID?19 VACCINE [Concomitant]
     Indication: COVID-19
     Dosage: UNK
     Route: 065
  3. QINLOCK [Suspect]
     Active Substance: RIPRETINIB
     Indication: GASTROINTESTINAL STROMAL TUMOUR
     Dosage: 150 MILLIGRAM, QD
     Route: 048
     Dates: start: 20201201

REACTIONS (10)
  - Infrequent bowel movements [Unknown]
  - Muscle spasms [Unknown]
  - Faeces hard [Unknown]
  - Neoplasm progression [Unknown]
  - Product dose omission issue [Unknown]
  - Constipation [Recovered/Resolved]
  - Gait disturbance [Unknown]
  - Acne [Recovering/Resolving]
  - Alopecia [Recovering/Resolving]
  - Blood bilirubin increased [Recovered/Resolved]

NARRATIVE: CASE EVENT DATE: 202101
